FAERS Safety Report 9242167 (Version 1)
Quarter: 2013Q2

REPORT INFORMATION
  Report Type: Spontaneous
  Country: VE (occurrence: VE)
  Receive Date: 20130419
  Receipt Date: 20130419
  Transmission Date: 20140414
  Serious: No
  Sender: FDA-Public Use
  Company Number: PHHY2012VE074343

PATIENT
  Age: 71 Week
  Sex: Female

DRUGS (9)
  1. TASIGNA [Suspect]
     Indication: CHRONIC MYELOID LEUKAEMIA
     Dosage: 800 MG, QD
     Route: 048
     Dates: start: 20111109
  2. TASIGNA [Suspect]
     Dosage: 600 MG, QD
     Route: 048
     Dates: start: 201206
  3. IRON [Concomitant]
     Route: 048
     Dates: start: 201010
  4. FOLIC ACID [Concomitant]
     Route: 048
     Dates: start: 201010
  5. SOYA LECITHIN [Concomitant]
     Dates: start: 201204
  6. SOYA LECITHIN [Concomitant]
     Dosage: UNK
  7. GINSENG [Concomitant]
     Dates: start: 201204
  8. OMEGA 3 [Concomitant]
     Dates: start: 201204
  9. COLLAGEN [Concomitant]
     Dates: start: 201204

REACTIONS (4)
  - Hypersensitivity [Recovering/Resolving]
  - Pruritus [Recovering/Resolving]
  - Weight increased [Not Recovered/Not Resolved]
  - Rash [Recovering/Resolving]
